FAERS Safety Report 7833780-3 (Version None)
Quarter: 2011Q4

REPORT INFORMATION
  Report Type: 
  Country: None (occurrence: None)
  Receive Date: 20111024
  Receipt Date: 20110916
  Transmission Date: 20120403
  Serious: Yes (Other)
  Sender: FDA-Public Use
  Company Number: GB-ROCHE-GNE324716

PATIENT
  Age: 70 Year
  Sex: Male

DRUGS (7)
  1. SOLIFENACIN SUCCINATE [Concomitant]
  2. SOTALOL HCL [Concomitant]
  3. ISMN [Concomitant]
  4. LUCENTIS [Suspect]
     Indication: AGE-RELATED MACULAR DEGENERATION
     Route: 050
     Dates: start: 20100202
  5. DULOXETIME HYDROCHLORIDE [Concomitant]
  6. LANSOPRAZOLE [Concomitant]
  7. SIMVASTATIN [Concomitant]

REACTIONS (1)
  - TRANSIENT ISCHAEMIC ATTACK [None]
